FAERS Safety Report 5636343-3 (Version None)
Quarter: 2008Q1

REPORT INFORMATION
  Report Type: 
  Country: None (occurrence: None)
  Receive Date: 20080225
  Receipt Date: 20080218
  Transmission Date: 20080703
  Serious: Yes (Death, Other)
  Sender: FDA-Public Use
  Company Number: PHHY2008JP01911

PATIENT
  Age: 71 Year
  Sex: Female

DRUGS (2)
  1. AREDIA [Suspect]
     Indication: METASTASES TO BONE
     Dosage: 30 MG, QMO
     Route: 042
     Dates: start: 20041101, end: 20060701
  2. ZOMETA [Suspect]
     Indication: METASTASES TO BONE
     Dosage: 4 MG, QMO
     Route: 042
     Dates: start: 20060701, end: 20061101

REACTIONS (7)
  - BONE DISORDER [None]
  - GINGIVAL ABSCESS [None]
  - IMPAIRED HEALING [None]
  - METASTASES TO LUNG [None]
  - OSTEOMYELITIS [None]
  - OSTEONECROSIS [None]
  - TOOTH EXTRACTION [None]
